FAERS Safety Report 4584806-4 (Version None)
Quarter: 2005Q1

REPORT INFORMATION
  Report Type: 
  Country: None (occurrence: None)
  Receive Date: 20050215
  Receipt Date: 20050203
  Transmission Date: 20050727
  Serious: Yes (Other)
  Sender: FDA-Public Use
  Company Number: 2005AL000500

PATIENT
  Sex: Female

DRUGS (1)
  1. GABAPENTIN [Suspect]
     Dosage: PO
     Route: 048
     Dates: start: 20050129, end: 20050131

REACTIONS (3)
  - DYSPNOEA [None]
  - ERYTHEMA [None]
  - RASH [None]
